FAERS Safety Report 5826384-5 (Version None)
Quarter: 2008Q3

REPORT INFORMATION
  Report Type: 
  Country: None (occurrence: None)
  Receive Date: 20080729
  Receipt Date: 20080725
  Transmission Date: 20090109
  Serious: Yes (Hospitalization)
  Sender: FDA-Public Use
  Company Number: US-BOEHRINGER INGELHEIM GMBH, GERMANY-2008-BP-10313BP

PATIENT
  Sex: Male

DRUGS (24)
  1. SPIRIVA [Suspect]
     Indication: BRONCHITIS CHRONIC
     Dates: start: 20060401, end: 20080402
  2. SPIRIVA [Suspect]
     Indication: DYSPNOEA
  3. SPIRIVA [Suspect]
     Indication: INCREASED UPPER AIRWAY SECRETION
  4. TRIAMTERENE AND HYDROCHLOROTHIAZIDE [Concomitant]
     Dates: end: 20080223
  5. TRIAMTERENE AND HYDROCHLOROTHIAZIDE [Concomitant]
     Dates: start: 20080310
  6. DIGOXIN [Concomitant]
  7. CALCIUM [Concomitant]
  8. VITAMIN D [Concomitant]
  9. MULTI-VITAMIN [Concomitant]
  10. TYLENOL [Concomitant]
  11. WARFARIN SODIUM [Concomitant]
     Dates: end: 20080301
  12. WARFARIN SODIUM [Concomitant]
     Dates: start: 20080317, end: 20080320
  13. WARFARIN SODIUM [Concomitant]
     Dates: start: 20080327
  14. ATENOLOL [Concomitant]
  15. LIPITOR [Concomitant]
  16. ASPIRIN [Concomitant]
     Dates: end: 20080304
  17. DICLOFENAC SODIUM [Concomitant]
     Dates: end: 20080304
  18. DICLOFENAC SODIUM [Concomitant]
     Dates: start: 20080407
  19. PRILOSEC [Concomitant]
     Dates: end: 20080226
  20. PRILOSEC [Concomitant]
     Dates: start: 20080407
  21. LASIX [Concomitant]
     Dates: start: 20080223, end: 20080306
  22. KLOR-CON [Concomitant]
     Dates: start: 20080223, end: 20080306
  23. AZITHROMYCIN [Concomitant]
     Dates: start: 20080223, end: 20080226
  24. NIASPAN [Concomitant]
     Dates: end: 20080301

REACTIONS (5)
  - EYE DISORDER [None]
  - HAEMATOCHEZIA [None]
  - PNEUMONIA [None]
  - VISUAL ACUITY REDUCED [None]
  - VISUAL IMPAIRMENT [None]
